FAERS Safety Report 8315657-2 (Version None)
Quarter: 2012Q2

REPORT INFORMATION
  Report Type: 
  Country: None (occurrence: None)
  Receive Date: 20120426
  Receipt Date: 20120412
  Transmission Date: 20120825
  Serious: Yes (Death, Hospitalization)
  Sender: FDA-Public Use
  Company Number: PH-BAXTER-2012BAX003140

PATIENT
  Sex: Female

DRUGS (1)
  1. DIANEAL PD-2 W/ DEXTROSE 1.5% [Suspect]
     Route: 033
     Dates: start: 20120404

REACTIONS (4)
  - CARDIAC ARREST [None]
  - DIABETES MELLITUS [None]
  - HYPERTENSIVE NEPHROPATHY [None]
  - HYPOAESTHESIA [None]
